FAERS Safety Report 9515241 (Version 1)
Quarter: 2013Q1

REPORT INFORMATION
  Report Type: Spontaneous
  Country: US (occurrence: None)
  Receive Date: 20130305
  Receipt Date: 20130305
  Transmission Date: 20140127
  Serious: Yes (Hospitalization)
  Sender: FDA-Public Use
  Company Number: 163-21880-12113949

PATIENT
  Age: 79 Year
  Sex: Male
  Weight: 89.81 kg

DRUGS (7)
  1. REVLIMID [Suspect]
     Indication: PLASMA CELL MYELOMA
     Dosage: 11/ /2012 - DISCONTINUED?1 IN 1 D
     Route: 048
     Dates: start: 201211
  2. ACTONEL (RISEDRONATE SODIUM) [Concomitant]
  3. XALATAN (LATANOPROST) [Concomitant]
  4. ACULAR (KETOROLAC TROMETHAMINE) [Concomitant]
  5. TIMOLOL (TIMOLOL) (NONE) [Concomitant]
  6. CALCIUM [Concomitant]
  7. GABAPENTIN [Concomitant]

REACTIONS (3)
  - Asthenia [None]
  - Confusional state [None]
  - Dehydration [None]
